FAERS Safety Report 24688404 (Version 1)
Quarter: 2024Q4

REPORT INFORMATION
  Report Type: Spontaneous
  Country: US (occurrence: US)
  Receive Date: 20241202
  Receipt Date: 20241202
  Transmission Date: 20250114
  Serious: No
  Sender: BIOGEN
  Company Number: US-BIOGEN-2024BI01291864

PATIENT
  Age: 39 Year
  Sex: Female

DRUGS (1)
  1. SKYCLARYS [Suspect]
     Active Substance: OMAVELOXOLONE
     Indication: Friedreich^s ataxia
     Route: 050
     Dates: start: 20240919

REACTIONS (2)
  - Alanine aminotransferase increased [Unknown]
  - Dysphonia [Unknown]

NARRATIVE: CASE EVENT DATE: 20241101
